FAERS Safety Report 23298389 (Version 1)
Quarter: 2023Q4

REPORT INFORMATION
  Report Type: Spontaneous
  Country: US (occurrence: US)
  Receive Date: 20231214
  Receipt Date: 20231214
  Transmission Date: 20240109
  Serious: No
  Sender: FDA-Public Use
  Company Number: US-DAIICHI SANKYO, INC.-DSU-2023-150609AA

PATIENT

DRUGS (1)
  1. ENHERTU [Suspect]
     Active Substance: FAM-TRASTUZUMAB DERUXTECAN-NXKI
     Indication: Inflammatory carcinoma of the breast
     Dosage: UNK
     Route: 065
     Dates: start: 20230831

REACTIONS (2)
  - Skin discolouration [Unknown]
  - Skin depigmentation [Unknown]
